FAERS Safety Report 4363401-6 (Version None)
Quarter: 2004Q2

REPORT INFORMATION
  Report Type: 
  Country: None (occurrence: None)
  Receive Date: 20040517
  Receipt Date: 20040308
  Transmission Date: 20050107
  Serious: No
  Sender: FDA-Public Use
  Company Number: S04-USA-01570-01

PATIENT
  Age: 68 Year
  Sex: Male

DRUGS (5)
  1. NAMENDA [Suspect]
     Indication: DEMENTIA ALZHEIMER'S TYPE
     Dates: start: 20040108
  2. RISPERDAL [Suspect]
     Indication: ANGER
     Dosage: 5 MG QD
  3. ARICEPT [Concomitant]
  4. ZOLOFT [Concomitant]
  5. RANITIDINE [Concomitant]

REACTIONS (2)
  - ANGER [None]
  - DRUG INTERACTION INHIBITION [None]
